FAERS Safety Report 10032717 (Version 1)
Quarter: 2014Q1

REPORT INFORMATION
  Report Type: Spontaneous
  Country: PK (occurrence: PK)
  Receive Date: 20140324
  Receipt Date: 20140324
  Transmission Date: 20141002
  Serious: Yes (Other)
  Sender: FDA-Public Use
  Company Number: PK-GLAXOSMITHKLINE-B0978797A

PATIENT
  Sex: Male

DRUGS (1)
  1. ZINACEF [Suspect]
     Indication: PROPHYLAXIS
     Dosage: 1.5MG PER DAY
     Route: 042
     Dates: start: 20140214, end: 20140214

REACTIONS (4)
  - Hypersensitivity [Recovered/Resolved]
  - Blood pressure increased [Recovered/Resolved]
  - Dyspnoea [Unknown]
  - Product quality issue [Unknown]
